FAERS Safety Report 9679047 (Version 1)
Quarter: 2013Q4

REPORT INFORMATION
  Report Type: Spontaneous
  Country: US (occurrence: None)
  Receive Date: 20131107
  Receipt Date: 20131107
  Transmission Date: 20140711
  Serious: Yes (Hospitalization, Other)
  Sender: FDA-Public Use
  Company Number: US-ZYDUS-002388

PATIENT
  Age: 51 Year
  Sex: Female

DRUGS (2)
  1. HYDROXYCHLOROQUINE [Suspect]
  2. OXYCODONE W/PARACETAMOL [Suspect]

REACTIONS (6)
  - Somnolence [None]
  - Hypotension [None]
  - Ventricular fibrillation [None]
  - Overdose [None]
  - Blood potassium decreased [None]
  - Electrocardiogram U-wave abnormality [None]
